FAERS Safety Report 6850124-4 (Version None)
Quarter: 2010Q3

REPORT INFORMATION
  Report Type: 
  Country: None (occurrence: None)
  Receive Date: 20100716
  Receipt Date: 20071011
  Transmission Date: 20110219
  Serious: No
  Sender: FDA-Public Use
  Company Number: US-PFIZER INC-2007086563

PATIENT
  Sex: Female
  Weight: 61.363 kg

DRUGS (9)
  1. CHANTIX [Suspect]
     Indication: SMOKING CESSATION THERAPY
     Route: 048
     Dates: start: 20071003
  2. ASACOL [Concomitant]
  3. NEXIUM [Concomitant]
  4. CYANOCOBALAMIN [Concomitant]
     Route: 030
  5. AZATHIOPRINE [Concomitant]
  6. FELDENE [Concomitant]
  7. CALCIUM [Concomitant]
  8. KLONOPIN [Concomitant]
     Indication: RESTLESS LEGS SYNDROME
  9. TAMSULOSIN HYDROCHLORIDE [Concomitant]
     Indication: MUSCLE SPASMS

REACTIONS (4)
  - ABDOMINAL DISTENSION [None]
  - FATIGUE [None]
  - NAUSEA [None]
  - SOMNOLENCE [None]
